APPROVED DRUG PRODUCT: SUFENTA PRESERVATIVE FREE
Active Ingredient: SUFENTANIL CITRATE
Strength: EQ 0.05MG BASE/ML
Dosage Form/Route: INJECTABLE;INJECTION
Application: N019050 | Product #001 | TE Code: AP
Applicant: RISING PHARMA HOLDINGS INC
Approved: May 4, 1984 | RLD: Yes | RS: Yes | Type: RX